FAERS Safety Report 9172905 (Version 3)
Quarter: 2013Q2

REPORT INFORMATION
  Report Type: Report from Study
  Country: JP (occurrence: JP)
  Receive Date: 20130319
  Receipt Date: 20130416
  Transmission Date: 20140414
  Serious: Yes (Other)
  Sender: FDA-Public Use
  Company Number: JP-OTSUKA-JP-2013-10639

PATIENT
  Age: 74 Year
  Sex: Male

DRUGS (7)
  1. SAMSCA [Suspect]
     Indication: FLUID RETENTION
     Dosage: 15 MG MILLIGRAM(S), QAM
     Route: 048
     Dates: start: 20120629, end: 20120705
  2. LASIX [Suspect]
     Indication: CARDIAC FAILURE
     Dosage: 80 MG MILLIGRAM(S), DAILY DOSE
     Route: 048
  3. ALDACTONE A [Suspect]
     Indication: CARDIAC FAILURE
     Dosage: 25 MG MILLIGRAM(S), DAILY DOSE
     Route: 048
  4. TAKEPRON [Concomitant]
     Indication: PROPHYLAXIS
     Dosage: 15 MG MILLIGRAM(S), DAILY DOSE
     Route: 048
  5. TAMBOCOR [Concomitant]
     Dosage: 100 MG MILLIGRAM(S), DAILY DOSE
     Route: 048
  6. HALFDIGOXIN [Concomitant]
     Indication: CARDIAC FAILURE
     Dosage: 0.125 MG MILLIGRAM(S), DAILY DOSE
     Route: 048
  7. VASOLAN [Concomitant]
     Indication: CARDIAC FAILURE
     Dosage: 120 MG MILLIGRAM(S), DAILY DOSE
     Route: 048

REACTIONS (2)
  - Hyperchloraemia [Recovered/Resolved]
  - Hypernatraemia [Recovered/Resolved]
